FAERS Safety Report 7905736 (Version 2)
Quarter: 2012Q4

REPORT INFORMATION
  Report Type: 
  Country: DK (occurrence: DK)
  Receive Date: 20110420
  Receipt Date: 20121009
  Transmission Date: 20130627
  Serious: Yes (Hospitalization)
  Sender: FDA-Public Use
  Company Number: DK-JNJFOC-20110403327

PATIENT
  Age: 24 Year
  Sex: Female
  Weight: 90 kg

DRUGS (2)
  1. REMICADE [Suspect]
     Indication: CROHN^S DISEASE
     Route: 042
     Dates: start: 20090402, end: 2009
  2. REMICADE [Suspect]
     Indication: CROHN^S DISEASE
     Dosage: induction week 0, 2, 6, and then every 8 weeks
     Route: 042
     Dates: start: 20071002, end: 20081124

REACTIONS (1)
  - Glomerulonephritis membranous [Not Recovered/Not Resolved]
